FAERS Safety Report 5135690-1 (Version None)
Quarter: 2006Q4

REPORT INFORMATION
  Report Type: 
  Country: None (occurrence: None)
  Receive Date: 20061026
  Receipt Date: 20061016
  Transmission Date: 20070319
  Serious: Yes (Other)
  Sender: FDA-Public Use
  Company Number: 2006AP04832

PATIENT
  Age: 53 Year
  Sex: Female

DRUGS (20)
  1. SEROQUEL [Suspect]
     Indication: SCHIZOPHRENIA
     Route: 048
  2. SEROQUEL [Suspect]
     Route: 048
  3. LIPITOR [Suspect]
     Route: 048
     Dates: start: 20051228
  4. ZOLPIDEM TARTRATE [Suspect]
     Route: 048
  5. SHUPRASE [Concomitant]
     Route: 048
  6. RISPERDAL [Concomitant]
     Route: 048
  7. RISPERDAL [Concomitant]
     Route: 048
  8. SYMMETREL [Concomitant]
     Route: 048
  9. AKINETON [Concomitant]
     Route: 048
  10. PANTOSIN [Concomitant]
     Route: 048
  11. MARZULENE [Concomitant]
     Route: 048
  12. SEPAZON [Concomitant]
     Route: 048
  13. SILECE [Concomitant]
     Route: 048
  14. EURODIN [Concomitant]
     Route: 048
  15. BENZALIN [Concomitant]
     Route: 048
  16. LEVOTOMIN [Concomitant]
     Route: 048
  17. BROVARIN [Concomitant]
     Route: 048
  18. ISOMYTAL [Concomitant]
     Route: 048
  19. PHENOBARBITAL TAB [Concomitant]
     Route: 048
  20. CONTOMIN [Concomitant]
     Route: 048

REACTIONS (2)
  - MYALGIA [None]
  - RHABDOMYOLYSIS [None]
